FAERS Safety Report 15915130 (Version 1)
Quarter: 2019Q1

REPORT INFORMATION
  Report Type: Spontaneous
  Country: US (occurrence: US)
  Receive Date: 20190114
  Receipt Date: 20190114
  Transmission Date: 20190417
  Serious: No
  Sender: FDA-Public Use
  Company Number: None

PATIENT
  Age: 75 Year
  Sex: Male

DRUGS (1)
  1. VOTRIENT [Suspect]
     Active Substance: PAZOPANIB HYDROCHLORIDE
     Dates: start: 201401, end: 201812

REACTIONS (3)
  - Disease progression [None]
  - Neoplasm [None]
  - Adverse reaction [None]

NARRATIVE: CASE EVENT DATE: 20181231
